FAERS Safety Report 9380848 (Version 1)
Quarter: 2013Q3

REPORT INFORMATION
  Report Type: Spontaneous
  Country: US (occurrence: US)
  Receive Date: 20130702
  Receipt Date: 20130702
  Transmission Date: 20140515
  Serious: No
  Sender: FDA-Public Use
  Company Number: US-009507513-1306USA012432

PATIENT
  Age: 7 Year
  Sex: Male

DRUGS (2)
  1. NASONEX [Suspect]
     Indication: SEASONAL ALLERGY
     Dosage: 50 MCG ONE SPRAY IN EACH NOSTRIL
     Route: 045
     Dates: start: 20130606
  2. CLARITIN [Concomitant]
     Dosage: 10 MG, QD
     Route: 048

REACTIONS (3)
  - Hypersensitivity [Not Recovered/Not Resolved]
  - Drug dose omission [Unknown]
  - Product quality issue [Unknown]
